FAERS Safety Report 21642015 (Version 2)
Quarter: 2022Q4

REPORT INFORMATION
  Report Type: Report from Study
  Country: CN (occurrence: None)
  Receive Date: 20221125
  Receipt Date: 20221207
  Transmission Date: 20230112
  Serious: Yes (Hospitalization)
  Sender: FDA-Public Use
  Company Number: CN-ROCHE-2729107

PATIENT
  Age: 61 Year
  Sex: Male
  Weight: 95 kg

DRUGS (35)
  1. FARICIMAB [Suspect]
     Active Substance: FARICIMAB
     Indication: Neovascular age-related macular degeneration
     Dosage: DATE OF MOST RECENT DOSE OF MASKED STUDY DRUG PRIOR TO AE/SAE ONSET WAS 05/NOV/2020 AT 12:37
     Route: 050
     Dates: start: 20201012
  2. PLACEBO [Suspect]
     Active Substance: UNSPECIFIED INGREDIENT
     Indication: Neovascular age-related macular degeneration
     Dosage: DATE OF MOST RECENT DOSE OF MASKED STUDY DRUG PRIOR TO AE/SAE ONSET WAS 05/NOV/2020 AT 12:37 ONCE EV
     Route: 050
     Dates: start: 20201012
  3. METOPROLOL TARTRATE [Concomitant]
     Active Substance: METOPROLOL TARTRATE
     Indication: Hypertension
     Route: 048
     Dates: start: 20201207, end: 20201207
  4. METOPROLOL TARTRATE [Concomitant]
     Active Substance: METOPROLOL TARTRATE
     Route: 048
     Dates: start: 20201216
  5. MORPHINE HYDROCHLORIDE [Concomitant]
     Active Substance: MORPHINE HYDROCHLORIDE
     Dates: start: 20201207, end: 20201207
  6. NICARDIPINE HYDROCHLORIDE [Concomitant]
     Active Substance: NICARDIPINE HYDROCHLORIDE
     Indication: Hypertension
     Route: 065
     Dates: start: 20201207, end: 20201208
  7. NICARDIPINE HYDROCHLORIDE [Concomitant]
     Active Substance: NICARDIPINE HYDROCHLORIDE
     Route: 065
     Dates: start: 20201208, end: 20201208
  8. NIFEDIPINE [Concomitant]
     Active Substance: NIFEDIPINE
     Indication: Hypertension
     Route: 048
     Dates: start: 20201207, end: 20201207
  9. NIFEDIPINE [Concomitant]
     Active Substance: NIFEDIPINE
     Route: 048
     Dates: start: 20201216
  10. NIFEDIPINE [Concomitant]
     Active Substance: NIFEDIPINE
     Route: 048
     Dates: start: 20201216
  11. VALSARTAN [Concomitant]
     Active Substance: VALSARTAN
     Indication: Hypertension
     Route: 048
     Dates: start: 20201207, end: 20201207
  12. VALSARTAN [Concomitant]
     Active Substance: VALSARTAN
     Route: 048
     Dates: start: 20201216
  13. IOPAMIDOL [Concomitant]
     Active Substance: IOPAMIDOL
     Route: 065
     Dates: start: 20201210, end: 20201210
  14. POTASSIUM CHLORIDE [Concomitant]
     Active Substance: POTASSIUM CHLORIDE
     Route: 048
     Dates: start: 20201210, end: 20201210
  15. POTASSIUM CHLORIDE [Concomitant]
     Active Substance: POTASSIUM CHLORIDE
     Route: 065
     Dates: start: 20201216, end: 20201216
  16. POTASSIUM CHLORIDE [Concomitant]
     Active Substance: POTASSIUM CHLORIDE
     Route: 048
     Dates: start: 20201210, end: 20201210
  17. POTASSIUM CHLORIDE [Concomitant]
     Active Substance: POTASSIUM CHLORIDE
     Route: 048
     Dates: start: 20201220, end: 20201220
  18. COMPOUND CHLORHEXIDINE GARGLE [Concomitant]
     Route: 065
     Dates: start: 20201215, end: 20201215
  19. HEPARIN SODIUM [Concomitant]
     Active Substance: HEPARIN SODIUM
     Route: 065
     Dates: start: 20201215, end: 20201215
  20. IOPROMIDE [Concomitant]
     Active Substance: IOPROMIDE
     Route: 065
     Dates: start: 20201215, end: 20201215
  21. CEFUROXIME SODIUM [Concomitant]
     Active Substance: CEFUROXIME SODIUM
     Route: 065
     Dates: start: 20201215, end: 20201215
  22. CEFUROXIME SODIUM [Concomitant]
     Active Substance: CEFUROXIME SODIUM
     Route: 065
     Dates: start: 20201216, end: 20201221
  23. VITAMIN C [Concomitant]
     Active Substance: ASCORBIC ACID
     Route: 065
     Dates: start: 20201216, end: 20201216
  24. SODIUM BICARBONATE [Concomitant]
     Active Substance: SODIUM BICARBONATE
     Route: 065
     Dates: start: 20201216, end: 20201216
  25. OMEPRAZOLE [Concomitant]
     Active Substance: OMEPRAZOLE
     Route: 065
     Dates: start: 20201216, end: 20201216
  26. LORATADINE [Concomitant]
     Active Substance: LORATADINE
     Indication: Decubitus ulcer
     Route: 048
     Dates: start: 20201219, end: 20201219
  27. LORATADINE [Concomitant]
     Active Substance: LORATADINE
     Route: 048
     Dates: start: 20201221, end: 20201221
  28. LACTULOSE [Concomitant]
     Active Substance: LACTULOSE
     Route: 048
     Dates: start: 20201219, end: 20201219
  29. DEZOCINE [Concomitant]
     Active Substance: DEZOCINE
     Route: 030
     Dates: start: 20201220, end: 20201220
  30. PANTOPRAZOLE SODIUM [Concomitant]
     Active Substance: PANTOPRAZOLE SODIUM
     Route: 048
     Dates: start: 20201216
  31. LOXOPROFEN SODIUM [Concomitant]
     Active Substance: LOXOPROFEN SODIUM
     Route: 048
     Dates: start: 20201218
  32. METRONIDAZOLE [Concomitant]
     Active Substance: METRONIDAZOLE
     Route: 048
     Dates: start: 20201219, end: 20201221
  33. CEFTRIAXONE SODIUM [Concomitant]
     Active Substance: CEFTRIAXONE SODIUM
     Route: 042
     Dates: start: 20201219, end: 20201219
  34. IOMEPROL [Concomitant]
     Active Substance: IOMEPROL
     Route: 042
     Dates: start: 20210115, end: 20210115
  35. CALAMINE [Concomitant]
     Active Substance: CALAMINE\FERRIC OXIDE RED\ZINC OXIDE
     Indication: Decubitus ulcer
     Dates: start: 20201219, end: 20201219

REACTIONS (1)
  - Aortic dissection [Recovered/Resolved]

NARRATIVE: CASE EVENT DATE: 20201207
